FAERS Safety Report 19259332 (Version 2)
Quarter: 2021Q2

REPORT INFORMATION
  Report Type: Spontaneous
  Country: US (occurrence: US)
  Receive Date: 20210514
  Receipt Date: 20210519
  Transmission Date: 20210717
  Serious: Yes (Death)
  Sender: FDA-Public Use
  Company Number: US-ROCHE-2830717

PATIENT
  Age: 79 Year
  Sex: Male

DRUGS (1)
  1. ROZLYTREK [Suspect]
     Active Substance: ENTRECTINIB
     Indication: BRONCHIAL CARCINOMA
     Route: 048
     Dates: start: 202011, end: 202103

REACTIONS (1)
  - Death [Fatal]

NARRATIVE: CASE EVENT DATE: 20210311
